FAERS Safety Report 7399388-1 (Version None)
Quarter: 2011Q2

REPORT INFORMATION
  Report Type: 
  Country: None (occurrence: None)
  Receive Date: 20110407
  Receipt Date: 20110323
  Transmission Date: 20111010
  Serious: Yes (Other)
  Sender: FDA-Public Use
  Company Number: PHHY2011FR26419

PATIENT
  Age: 35 Year
  Sex: Female

DRUGS (1)
  1. PARLODEL [Suspect]
     Indication: LACTATION INHIBITION THERAPY
     Dosage: 5 MG, QD

REACTIONS (9)
  - CEREBRAL MICROANGIOPATHY [None]
  - PROTEINURIA [None]
  - NECK PAIN [None]
  - HYPERTENSION [None]
  - TENSION HEADACHE [None]
  - CERVICAL ROOT PAIN [None]
  - VISION BLURRED [None]
  - PAIN IN EXTREMITY [None]
  - OEDEMA PERIPHERAL [None]
